FAERS Safety Report 9797101 (Version 1)
Quarter: 2014Q1

REPORT INFORMATION
  Report Type: Spontaneous
  Country: FR (occurrence: FR)
  Receive Date: 20140106
  Receipt Date: 20140106
  Transmission Date: 20141002
  Serious: Yes (Other)
  Sender: FDA-Public Use
  Company Number: PHHY2013FR154211

PATIENT
  Age: 40 Year
  Sex: Female

DRUGS (1)
  1. CEFUROXIME SANDOZ [Suspect]
     Indication: SINUSITIS
     Dosage: 1 DF, ONCE/SINGLE
     Route: 048
     Dates: start: 20130618, end: 20130618

REACTIONS (2)
  - Loss of consciousness [Recovered/Resolved]
  - Urticaria [Recovered/Resolved]
